FAERS Safety Report 25758459 (Version 1)
Quarter: 2025Q3

REPORT INFORMATION
  Report Type: Report from Study
  Country: US (occurrence: US)
  Receive Date: 20250904
  Receipt Date: 20250904
  Transmission Date: 20251020
  Serious: Yes (Other)
  Sender: ALEXION PHARMACEUTICALS
  Company Number: US-ASTRAZENECA-202508USA023855US

PATIENT
  Age: 57 Year
  Sex: Female

DRUGS (2)
  1. STRENSIQ [Suspect]
     Active Substance: ASFOTASE ALFA
     Indication: Phosphorus metabolism disorder
     Dosage: 80 MILLIGRAM, TIW
     Route: 065
  2. PREDNISONE [Concomitant]
     Active Substance: PREDNISONE
     Route: 065

REACTIONS (20)
  - Immunodeficiency [Unknown]
  - Back pain [Unknown]
  - Arthralgia [Unknown]
  - Infection [Recovered/Resolved]
  - Migraine [Unknown]
  - Neck pain [Unknown]
  - Chills [Unknown]
  - Fatigue [Unknown]
  - Peripheral swelling [Unknown]
  - Abdominal pain [Unknown]
  - Cough [Unknown]
  - Joint swelling [Unknown]
  - Deformity [Unknown]
  - Musculoskeletal stiffness [Unknown]
  - Tenderness [Unknown]
  - Lymphadenopathy [Unknown]
  - Sinusitis [Unknown]
  - Pulmonary mass [Unknown]
  - Dermatitis [Unknown]
  - Myalgia [Unknown]
